FAERS Safety Report 9271343 (Version 4)
Quarter: 2015Q1

REPORT INFORMATION
  Report Type: Spontaneous
  Country: US (occurrence: US)
  Receive Date: 20130506
  Receipt Date: 20150223
  Transmission Date: 20150721
  Serious: Yes (Other)
  Sender: FDA-Public Use
  Company Number: US-009507513-1305USA000888

PATIENT
  Sex: Male
  Weight: 76.64 kg

DRUGS (4)
  1. FINASTERIDE. [Suspect]
     Active Substance: FINASTERIDE
     Indication: ALOPECIA
  2. FINASTERIDE. [Suspect]
     Active Substance: FINASTERIDE
     Indication: BENIGN PROSTATIC HYPERPLASIA
     Dosage: 5 MG, QD
     Route: 048
     Dates: start: 200911, end: 2012
  3. PROPECIA [Suspect]
     Active Substance: FINASTERIDE
     Indication: ALOPECIA
     Dosage: 1 MG, QD
     Route: 048
     Dates: start: 20050701, end: 20091018
  4. FINASTERIDE. [Suspect]
     Active Substance: FINASTERIDE
     Dosage: 5 MG, QD
     Route: 048
     Dates: start: 20100118, end: 20100405

REACTIONS (27)
  - Pollakiuria [Unknown]
  - Haemorrhoids [Unknown]
  - Fatigue [Unknown]
  - C-reactive protein increased [Unknown]
  - Muscular weakness [Unknown]
  - Anxiety [Not Recovered/Not Resolved]
  - Prostatitis [Unknown]
  - Tonsillectomy [Unknown]
  - Carotid bruit [Unknown]
  - Deafness neurosensory [Unknown]
  - Anogenital warts [Unknown]
  - Erectile dysfunction [Not Recovered/Not Resolved]
  - Hypogonadism [Unknown]
  - Drug administration error [Unknown]
  - Acne [Unknown]
  - Hyperthyroidism [Unknown]
  - Breast tenderness [Unknown]
  - Dermatitis [Unknown]
  - Dizziness [Unknown]
  - Hyperlipidaemia [Unknown]
  - Sexual dysfunction [Not Recovered/Not Resolved]
  - Depression [Not Recovered/Not Resolved]
  - Libido decreased [Unknown]
  - Arthralgia [Unknown]
  - Melanocytic naevus [Unknown]
  - Retrograde ejaculation [Unknown]
  - Tinnitus [Unknown]

NARRATIVE: CASE EVENT DATE: 2006
